FAERS Safety Report 25241202 (Version 1)
Quarter: 2025Q2

REPORT INFORMATION
  Report Type: Spontaneous
  Country: FR (occurrence: FR)
  Receive Date: 20250425
  Receipt Date: 20250425
  Transmission Date: 20250716
  Serious: Yes (Other)
  Sender: BAUSCH AND LOMB
  Company Number: FR-BAUSCH-BL-2025-005403

PATIENT
  Age: 76 Year
  Sex: Female

DRUGS (3)
  1. ZYCLARA [Suspect]
     Active Substance: IMIQUIMOD
     Indication: Actinic keratosis
     Dosage: 1 APPLICATION PER DAY IN THE EVENING BEFORE GOING TO BED
     Route: 003
     Dates: start: 20250314, end: 20250321
  2. ORENCIA [Concomitant]
     Active Substance: ABATACEPT
     Indication: Product used for unknown indication
  3. METHOTREXATE [Concomitant]
     Active Substance: METHOTREXATE
     Indication: Product used for unknown indication

REACTIONS (1)
  - Application site erythema [Recovering/Resolving]

NARRATIVE: CASE EVENT DATE: 20250316
